FAERS Safety Report 11508329 (Version 1)
Quarter: 2015Q3

REPORT INFORMATION
  Report Type: Spontaneous
  Country: US (occurrence: US)
  Receive Date: 20150903
  Receipt Date: 20150903
  Transmission Date: 20151125
  Serious: No
  Sender: FDA-Public Use
  Company Number: US-ELI_LILLY_AND_COMPANY-US200912001204

PATIENT
  Sex: Male

DRUGS (3)
  1. HUMALOG [Suspect]
     Active Substance: INSULIN LISPRO
     Dosage: UNK, AS NEEDED
     Dates: start: 20091103
  2. PRANDIN [Concomitant]
     Active Substance: REPAGLINIDE
  3. LANTUS [Concomitant]
     Active Substance: INSULIN GLARGINE
     Dosage: 7 U, DAILY (1/D)

REACTIONS (3)
  - Memory impairment [Unknown]
  - Cardiac disorder [Unknown]
  - Confusional state [Unknown]
